FAERS Safety Report 20901878 (Version 1)
Quarter: 2022Q2

REPORT INFORMATION
  Report Type: Other
  Country: US (occurrence: None)
  Receive Date: 20220601
  Receipt Date: 20220601
  Transmission Date: 20220721
  Serious: Yes (Other)
  Sender: FDA-Public Use
  Company Number: US-ROCHE-2850621

PATIENT
  Sex: Female

DRUGS (3)
  1. XOLAIR [Suspect]
     Active Substance: OMALIZUMAB
     Indication: Idiopathic urticaria
     Dosage: SUBSEQUENT DOSE OF TREATMENT: 25/JAN/2019
     Route: 058
     Dates: start: 20181218
  2. XOLAIR [Suspect]
     Active Substance: OMALIZUMAB
  3. XOLAIR [Suspect]
     Active Substance: OMALIZUMAB

REACTIONS (6)
  - Anaphylactic reaction [Unknown]
  - Illness [Unknown]
  - Ear infection [Unknown]
  - Eosinophilic colitis [Recovered/Resolved]
  - Diarrhoea [Unknown]
  - Dyspepsia [Unknown]
